FAERS Safety Report 17997646 (Version 9)
Quarter: 2021Q2

REPORT INFORMATION
  Report Type: Report from Study
  Country: US (occurrence: US)
  Receive Date: 20200708
  Receipt Date: 20210519
  Transmission Date: 20210717
  Serious: Yes (Life-Threatening, Hospitalization, Disabling)
  Sender: FDA-Public Use
  Company Number: US-CELGENEUS-USA-20200700184

PATIENT
  Age: 62 Year
  Sex: Male

DRUGS (171)
  1. OZANIMOD. [Suspect]
     Active Substance: OZANIMOD
     Route: 048
     Dates: start: 20201012
  2. ASPIRIN. [Concomitant]
     Active Substance: ASPIRIN
     Indication: ARTHRITIS
     Dosage: 81 MILLIGRAM
     Route: 048
     Dates: start: 2008
  3. WARFARIN [Concomitant]
     Active Substance: WARFARIN
     Dosage: .5 MILLIGRAM
     Route: 048
     Dates: start: 20200704, end: 20200704
  4. VICTOZA [Concomitant]
     Active Substance: LIRAGLUTIDE
     Indication: TYPE 2 DIABETES MELLITUS
     Dosage: 1.8 OUNCE
     Route: 058
     Dates: start: 2017
  5. PREDNISONE. [Concomitant]
     Active Substance: PREDNISONE
     Dosage: 15 MILLIGRAM
     Route: 048
     Dates: start: 20200923, end: 202011
  6. LIDOCAINE PATCH [Concomitant]
     Active Substance: LIDOCAINE
     Indication: LOCAL ANAESTHESIA
     Route: 062
     Dates: start: 20200618, end: 20200707
  7. IOPAMIDOL [Concomitant]
     Active Substance: IOPAMIDOL
     Route: 041
     Dates: start: 20201214, end: 20201214
  8. PROPOFOL. [Concomitant]
     Active Substance: PROPOFOL
     Indication: COLONOSCOPY
     Dosage: 100 MILLIGRAM
     Route: 041
     Dates: start: 20190813, end: 20190813
  9. NACL [Concomitant]
     Active Substance: SODIUM CHLORIDE
     Dosage: 500 MILLILITER
     Route: 041
     Dates: start: 20200614, end: 20200614
  10. NACL [Concomitant]
     Active Substance: SODIUM CHLORIDE
     Route: 041
     Dates: start: 202012, end: 202012
  11. HEPARIN [Concomitant]
     Active Substance: HEPARIN SODIUM
     Dosage: 1800 UNITS
     Route: 041
     Dates: start: 20200607, end: 20200612
  12. INSULINE GLARGINE [Concomitant]
     Active Substance: INSULIN GLARGINE
     Dosage: 18 UNITS
     Route: 058
     Dates: start: 20200625, end: 20200706
  13. METOCLOPRAMIDE. [Concomitant]
     Active Substance: METOCLOPRAMIDE
     Indication: INFLAMMATORY BOWEL DISEASE
     Route: 041
     Dates: start: 20200604, end: 20200608
  14. MORPHINE [Concomitant]
     Active Substance: MORPHINE
     Indication: BACK PAIN
     Route: 041
     Dates: start: 20200616, end: 20200619
  15. MULTIVITAMIN [Concomitant]
     Active Substance: VITAMINS
     Indication: SUPPLEMENTATION THERAPY
     Route: 048
     Dates: start: 20200607, end: 20200707
  16. PIPERACILLIN/TAZOBACTAM [Concomitant]
     Active Substance: PIPERACILLIN SODIUM\TAZOBACTAM SODIUM
     Indication: SEPSIS
     Route: 041
     Dates: start: 20200629, end: 20200707
  17. POLYETHYLENE GLYCOL [Concomitant]
     Active Substance: POLYETHYLENE GLYCOLS
     Dosage: 17 GRAM
     Route: 048
     Dates: start: 20200629, end: 20200707
  18. LACTATED RINGERS SOLUTION [Concomitant]
     Active Substance: CALCIUM CHLORIDE\POTASSIUM CHLORIDE\SODIUM CHLORIDE\SODIUM LACTATE
     Dosage: 1000 MILLILITER
     Route: 041
     Dates: start: 20200629, end: 20200702
  19. LACTATED RINGERS SOLUTION [Concomitant]
     Active Substance: CALCIUM CHLORIDE\POTASSIUM CHLORIDE\SODIUM CHLORIDE\SODIUM LACTATE
     Route: 041
     Dates: start: 20201206, end: 20201211
  20. AMOXICILLIN CLAVULANATE [Concomitant]
     Active Substance: AMOXICILLIN\CLAVULANIC ACID
     Dosage: 875?125 MG
     Route: 048
     Dates: start: 20201218, end: 20201225
  21. CLOPIDOGREL [Concomitant]
     Active Substance: CLOPIDOGREL BISULFATE
     Indication: THROMBOSIS PROPHYLAXIS
     Route: 048
     Dates: start: 20200610
  22. OXYCODONE [Concomitant]
     Active Substance: OXYCODONE
     Route: 048
     Dates: start: 20200604, end: 20200707
  23. NOVOLOG [Concomitant]
     Active Substance: INSULIN ASPART
     Indication: DIABETES MELLITUS
     Dosage: 1 INJECTION
     Route: 030
     Dates: start: 201909
  24. PREDNISONE. [Concomitant]
     Active Substance: PREDNISONE
     Dosage: 12.5 MILLIGRAM
     Route: 048
     Dates: start: 20200619, end: 20200619
  25. PREDNISONE. [Concomitant]
     Active Substance: PREDNISONE
     Dosage: 12.5 MILLIGRAM
     Route: 048
     Dates: start: 202009, end: 20200922
  26. PREDNISONE. [Concomitant]
     Active Substance: PREDNISONE
     Dosage: 15 MILLIGRAM
     Route: 048
     Dates: start: 20201214, end: 20201220
  27. KETOROLAC [Concomitant]
     Active Substance: KETOROLAC TROMETHAMINE
     Indication: ISCHAEMIA
  28. NACL [Concomitant]
     Active Substance: SODIUM CHLORIDE
     Dosage: 1000 MILLILITER
     Route: 041
     Dates: start: 20200603, end: 20200607
  29. GABAPENTIN. [Concomitant]
     Active Substance: GABAPENTIN
     Dosage: 900 MILLIGRAM
     Route: 048
     Dates: start: 20200623
  30. HEPARIN [Concomitant]
     Active Substance: HEPARIN SODIUM
     Dosage: 5000 UNITS
     Route: 041
     Dates: start: 20200603, end: 20200603
  31. INSULINE GLARGINE [Concomitant]
     Active Substance: INSULIN GLARGINE
     Dosage: 10 UNITS
     Route: 058
     Dates: start: 20200610, end: 20200610
  32. INSULINE GLARGINE [Concomitant]
     Active Substance: INSULIN GLARGINE
     Dosage: 16 UNITS
     Route: 058
     Dates: start: 20200620, end: 20200620
  33. METHOCARBAMOL. [Concomitant]
     Active Substance: METHOCARBAMOL
     Route: 048
     Dates: start: 20200621, end: 20200707
  34. MORPHINE [Concomitant]
     Active Substance: MORPHINE
     Indication: PAIN
     Dosage: 30 MILLIGRAM
     Route: 048
     Dates: start: 20200623, end: 20200707
  35. ONDANSETRON [Concomitant]
     Active Substance: ONDANSETRON
     Indication: NAUSEA
     Route: 041
     Dates: start: 20201206, end: 20201206
  36. POLYETHYLENE GLYCOL [Concomitant]
     Active Substance: POLYETHYLENE GLYCOLS
     Indication: CONSTIPATION
     Dosage: 17 GRAM
     Route: 065
     Dates: start: 20200614, end: 20200616
  37. CEFTRIAXONE. [Concomitant]
     Active Substance: CEFTRIAXONE
     Indication: SEPSIS
     Dosage: 2 GRAM
     Route: 041
     Dates: start: 20201206, end: 20201206
  38. DEXTROSE 5% NACL 0.45% [Concomitant]
     Indication: FLUID REPLACEMENT
     Dosage: 1500 MILLILITER
     Route: 041
     Dates: start: 20200619, end: 20200624
  39. DEXTROSE 5% NACL 0.45% [Concomitant]
     Indication: ISCHAEMIA
     Dosage: 1500 MILLILITER
     Route: 041
     Dates: start: 20200629, end: 20200701
  40. LOSARTAN. [Concomitant]
     Active Substance: LOSARTAN
     Dosage: 50 MILLIGRAM
     Route: 048
     Dates: start: 20200617, end: 20200618
  41. WARFARIN [Concomitant]
     Active Substance: WARFARIN
     Indication: ANTICOAGULANT THERAPY
     Dosage: 5 MILLIGRAM
     Route: 048
     Dates: start: 20200623, end: 20200623
  42. OXYCODONE [Concomitant]
     Active Substance: OXYCODONE
     Route: 048
     Dates: start: 20200604, end: 20200622
  43. PREDNISONE. [Concomitant]
     Active Substance: PREDNISONE
     Indication: INFLAMMATORY BOWEL DISEASE
     Dosage: 20 MILLIGRAM
     Route: 048
     Dates: start: 20180417, end: 20181018
  44. PREDNISONE. [Concomitant]
     Active Substance: PREDNISONE
     Dosage: 5 MILLIGRAM
     Route: 048
     Dates: start: 20200213, end: 20200304
  45. PREDNISONE. [Concomitant]
     Active Substance: PREDNISONE
     Dosage: 7.5 MILLIGRAM
     Route: 048
     Dates: start: 20200423
  46. PREDNISONE. [Concomitant]
     Active Substance: PREDNISONE
     Dosage: 30 MILLIGRAM
     Route: 048
     Dates: start: 202011, end: 20201122
  47. COLCHICINE. [Concomitant]
     Active Substance: COLCHICINE
     Indication: GOUT
     Dosage: 1.2 MILLIGRAM
     Route: 048
     Dates: start: 20200403, end: 20200413
  48. INSULIN LISPRO [Concomitant]
     Active Substance: INSULIN LISPRO
     Dosage: 4 UNITS
     Route: 058
     Dates: start: 20200608, end: 20200608
  49. LORATADINE. [Concomitant]
     Active Substance: LORATADINE
     Indication: ALLERGY PROPHYLAXIS
  50. MAGNESIUM HYDROXIDE. [Concomitant]
     Active Substance: MAGNESIUM HYDROXIDE
     Indication: CONSTIPATION
  51. IOPAMIDOL [Concomitant]
     Active Substance: IOPAMIDOL
     Indication: DIAGNOSTIC ASPIRATION
     Route: 041
     Dates: start: 20200607, end: 20200618
  52. EPINEPHRINE. [Concomitant]
     Active Substance: EPINEPHRINE
     Indication: CARDIAC ARREST
     Dosage: 1 MILLIGRAM
     Route: 041
     Dates: start: 20200611, end: 20200611
  53. HEPARIN [Concomitant]
     Active Substance: HEPARIN SODIUM
     Dosage: 1000 UNITS
     Route: 041
     Dates: start: 20200604, end: 20200604
  54. HYDROCORTISONE. [Concomitant]
     Active Substance: HYDROCORTISONE
     Dosage: 25 MILLIGRAM
     Route: 061
     Dates: start: 20200630, end: 20200706
  55. DEXTROSE. [Concomitant]
     Active Substance: DEXTROSE
     Indication: FLUID REPLACEMENT
     Route: 041
     Dates: start: 20200616, end: 20200624
  56. METHOCARBAMOL. [Concomitant]
     Active Substance: METHOCARBAMOL
     Indication: MUSCLE SPASMS
     Route: 048
     Dates: start: 20200617, end: 20200621
  57. MIDAZOLAM. [Concomitant]
     Active Substance: MIDAZOLAM
     Route: 041
     Dates: start: 20200611, end: 20200616
  58. MORPHINE [Concomitant]
     Active Substance: MORPHINE
     Route: 041
     Dates: start: 20201206, end: 20201207
  59. LIDOCAINE. [Concomitant]
     Active Substance: LIDOCAINE
     Indication: ROUTINE HEALTH MAINTENANCE
     Route: 023
     Dates: start: 20200603, end: 20200624
  60. LIDOCAINE. [Concomitant]
     Active Substance: LIDOCAINE
     Route: 023
     Dates: start: 20200701, end: 20200701
  61. METRONIDAZOLE. [Concomitant]
     Active Substance: METRONIDAZOLE
     Indication: CHOLECYSTITIS ACUTE
  62. LOSARTAN. [Concomitant]
     Active Substance: LOSARTAN
     Route: 048
     Dates: start: 20200617, end: 20200617
  63. OXYCODONE [Concomitant]
     Active Substance: OXYCODONE
     Indication: ARTHRALGIA
     Dosage: 5?3.25 MG
     Route: 048
     Dates: start: 20181019
  64. OZEMPIC [Concomitant]
     Active Substance: SEMAGLUTIDE
     Indication: DIABETES MELLITUS
     Dosage: .25 MILLIGRAM
     Route: 030
     Dates: start: 20200114
  65. ATORVASTATIN [Concomitant]
     Active Substance: ATORVASTATIN
     Indication: HYPERLIPIDAEMIA
     Dosage: 80 MILLIGRAM
     Route: 048
     Dates: start: 202003
  66. PREDNISONE. [Concomitant]
     Active Substance: PREDNISONE
     Dosage: 10 MILLIGRAM
     Route: 048
     Dates: start: 20181212, end: 201904
  67. INSULIN LISPRO [Concomitant]
     Active Substance: INSULIN LISPRO
     Dosage: 6 UNITS
     Route: 058
     Dates: start: 20200624, end: 20200628
  68. IODIXANOL. [Concomitant]
     Active Substance: IODIXANOL
     Route: 041
     Dates: start: 20200604, end: 20200604
  69. IOPAMIDOL [Concomitant]
     Active Substance: IOPAMIDOL
     Route: 041
     Dates: start: 20200629, end: 20200629
  70. NACL [Concomitant]
     Active Substance: SODIUM CHLORIDE
     Dosage: 500 MILLILITER
     Route: 041
     Dates: start: 20200629, end: 20200630
  71. NACL [Concomitant]
     Active Substance: SODIUM CHLORIDE
     Route: 041
     Dates: start: 20201206, end: 20201208
  72. INSULINE GLARGINE [Concomitant]
     Active Substance: INSULIN GLARGINE
     Dosage: 12 UNITS
     Route: 058
     Dates: start: 20200611, end: 20200618
  73. MIDAZOLAM. [Concomitant]
     Active Substance: MIDAZOLAM
     Indication: ISCHAEMIA
     Route: 041
     Dates: start: 20200603, end: 20200604
  74. MIDAZOLAM. [Concomitant]
     Active Substance: MIDAZOLAM
     Route: 041
     Dates: start: 20201211, end: 20201211
  75. MORPHINE [Concomitant]
     Active Substance: MORPHINE
     Route: 041
     Dates: start: 20200629, end: 20200629
  76. MORPHINE [Concomitant]
     Active Substance: MORPHINE
     Route: 048
     Dates: start: 20200629, end: 20200827
  77. PANTOPRAZOLE [Concomitant]
     Active Substance: PANTOPRAZOLE
     Dosage: 80 MILLIGRAM
     Route: 048
     Dates: start: 20201208
  78. TAMSULOSIN [Concomitant]
     Active Substance: TAMSULOSIN
     Indication: URINARY RETENTION
     Dosage: .4 MILLIGRAM
     Route: 048
     Dates: start: 20200620, end: 20200629
  79. BISACODYL. [Concomitant]
     Active Substance: BISACODYL
     Route: 048
     Dates: start: 20201208, end: 20201213
  80. CLOPIDOGREL [Concomitant]
     Active Substance: CLOPIDOGREL BISULFATE
     Indication: CHOLECYSTITIS ACUTE
  81. OZANIMOD. [Suspect]
     Active Substance: OZANIMOD
     Route: 048
     Dates: start: 20201218
  82. PREDNISONE. [Concomitant]
     Active Substance: PREDNISONE
     Dosage: 12.5 MILLIGRAM
     Route: 048
     Dates: start: 201905, end: 20190701
  83. PREDNISONE. [Concomitant]
     Active Substance: PREDNISONE
     Dosage: 15 MILLIGRAM
     Route: 048
     Dates: start: 20200728, end: 202009
  84. NACL [Concomitant]
     Active Substance: SODIUM CHLORIDE
     Dosage: 1000 MILLILITRE
     Route: 041
     Dates: start: 20200611, end: 20200611
  85. CALCIUM GLUCONATE. [Concomitant]
     Active Substance: CALCIUM GLUCONATE
     Indication: MINERAL SUPPLEMENTATION
     Dosage: 2 MILLIGRAM
     Route: 041
     Dates: start: 20200614, end: 20200614
  86. DOCUSATE SODIUM. [Concomitant]
     Active Substance: DOCUSATE SODIUM
     Indication: FAECES SOFT
     Dosage: 100 MILLIGRAM
     Route: 048
     Dates: start: 20200606, end: 20200624
  87. ONDANSETRON [Concomitant]
     Active Substance: ONDANSETRON
     Indication: NAUSEA
     Route: 048
     Dates: start: 20200604, end: 20200629
  88. PIPERACILLIN/TAZOBACTAM [Concomitant]
     Active Substance: PIPERACILLIN SODIUM\TAZOBACTAM SODIUM
     Route: 041
     Dates: start: 20201206, end: 20201217
  89. POLYETHYLENE GLYCOL [Concomitant]
     Active Substance: POLYETHYLENE GLYCOLS
     Dosage: 17 GRAM
     Route: 065
     Dates: start: 20200620, end: 20200707
  90. POTASSIUM CHLORIDE. [Concomitant]
     Active Substance: POTASSIUM CHLORIDE
     Dosage: 40 MILLIEQUIVALENTS
     Route: 048
     Dates: start: 20201209, end: 20201217
  91. BISACODYL. [Concomitant]
     Active Substance: BISACODYL
     Indication: CONSTIPATION
     Route: 054
     Dates: start: 20200629, end: 20200629
  92. METRONIDAZOLE. [Concomitant]
     Active Substance: METRONIDAZOLE
     Indication: SEPSIS
     Dosage: 500 MILLIGRAM
     Route: 041
     Dates: start: 20201206, end: 20201206
  93. OZANIMOD. [Suspect]
     Active Substance: OZANIMOD
     Route: 048
     Dates: end: 20201207
  94. LOSARTAN. [Concomitant]
     Active Substance: LOSARTAN
     Dosage: 50 MILLIGRAM
     Route: 048
     Dates: start: 20200723
  95. WARFARIN [Concomitant]
     Active Substance: WARFARIN
     Dosage: 1 MILLIGRAM
     Route: 048
     Dates: start: 20200705, end: 20200706
  96. WARFARIN [Concomitant]
     Active Substance: WARFARIN
     Dosage: 5 MILLIGRAM
     Route: 048
     Dates: start: 20201201, end: 20201211
  97. CEPHALEXIN. [Concomitant]
     Active Substance: CEPHALEXIN
     Indication: LOCALISED INFECTION
     Dosage: 1000 MILLIGRAM
     Route: 048
     Dates: start: 20200413
  98. PREDNISONE. [Concomitant]
     Active Substance: PREDNISONE
     Dosage: 15 MILLIGRAM
     Route: 048
     Dates: start: 201904, end: 201905
  99. PREDNISONE. [Concomitant]
     Active Substance: PREDNISONE
     Dosage: 10 MILLIGRAM
     Route: 048
     Dates: start: 20190702, end: 20200128
  100. PREDNISONE. [Concomitant]
     Active Substance: PREDNISONE
     Dosage: 20 MILLIGRAM
     Route: 048
     Dates: start: 20200620, end: 20200627
  101. PREDNISONE. [Concomitant]
     Active Substance: PREDNISONE
     Dosage: 25 MILLIGRAM
     Route: 048
     Dates: start: 20201130, end: 20201213
  102. INSULIN LISPRO [Concomitant]
     Active Substance: INSULIN LISPRO
     Indication: TYPE 2 DIABETES MELLITUS
     Route: 058
     Dates: start: 20200609, end: 20200609
  103. INSULIN LISPRO [Concomitant]
     Active Substance: INSULIN LISPRO
     Dosage: 8 UNITS
     Route: 058
     Dates: start: 20200609, end: 20200706
  104. IODIXANOL. [Concomitant]
     Active Substance: IODIXANOL
     Indication: DIAGNOSTIC ASPIRATION
     Dosage: 33 MILLILITER
     Route: 041
     Dates: start: 20200603, end: 20200603
  105. KETOROLAC [Concomitant]
     Active Substance: KETOROLAC TROMETHAMINE
     Indication: PAIN
     Dosage: 45 MILLIGRAM
     Route: 041
     Dates: start: 20200619, end: 20200621
  106. LABETALOL [Concomitant]
     Active Substance: LABETALOL\LABETALOL HYDROCHLORIDE
     Indication: HYPERTENSION
     Route: 041
     Dates: start: 20200611, end: 20200611
  107. LACTOBACILLUS [Concomitant]
     Active Substance: LACTOBACILLUS ACIDOPHILUS
     Indication: PROBIOTIC THERAPY
     Route: 048
     Dates: start: 20200619, end: 20200707
  108. MAGNESIUM HYDROXIDE. [Concomitant]
     Active Substance: MAGNESIUM HYDROXIDE
     Indication: LAXATIVE SUPPORTIVE CARE
     Route: 048
     Dates: start: 20200606, end: 20200624
  109. INSULINE GLARGINE [Concomitant]
     Active Substance: INSULIN GLARGINE
     Dosage: 18 UNITS
     Route: 058
     Dates: start: 20200621, end: 20200623
  110. PANTOPRAZOLE [Concomitant]
     Active Substance: PANTOPRAZOLE
     Indication: GASTRIC ULCER
     Route: 041
     Dates: start: 20200608, end: 20200616
  111. PANTOPRAZOLE [Concomitant]
     Active Substance: PANTOPRAZOLE
     Route: 041
     Dates: start: 20201206, end: 20201208
  112. PIPERACILLIN/TAZOBACTAM [Concomitant]
     Active Substance: PIPERACILLIN SODIUM\TAZOBACTAM SODIUM
     Indication: INFECTION
     Dosage: 10.125 MILLIGRAM
     Route: 041
     Dates: start: 20200611, end: 20200619
  113. SODIUM HYPOCHLORITE [Concomitant]
     Active Substance: SODIUM HYPOCHLORITE
     Indication: INFECTION PROPHYLAXIS
     Route: 062
     Dates: start: 20200618, end: 20200618
  114. AMOXICILLIN CLAVULANATE [Concomitant]
     Active Substance: AMOXICILLIN\CLAVULANIC ACID
     Indication: CHOLECYSTITIS ACUTE
     Dosage: 1750 MILLIGRAM
     Route: 048
     Dates: start: 20200703, end: 20200707
  115. AMLODIPINE [Concomitant]
     Active Substance: AMLODIPINE BESYLATE
     Dosage: 10 MILLIGRAM
     Route: 048
     Dates: start: 20201213, end: 20201217
  116. LOSARTAN. [Concomitant]
     Active Substance: LOSARTAN
     Indication: HYPERTENSION
     Dosage: 100 MILLIGRAM
     Route: 048
     Dates: start: 2008
  117. LOSARTAN. [Concomitant]
     Active Substance: LOSARTAN
     Dosage: 100 MILLIGRAM
     Route: 048
     Dates: start: 20200619, end: 20200629
  118. ACETAMINOPHEN. [Concomitant]
     Active Substance: ACETAMINOPHEN
     Indication: ARTHRITIS
     Dosage: 500 MILLIGRAM
     Route: 048
     Dates: start: 2008
  119. ACETAMINOPHEN. [Concomitant]
     Active Substance: ACETAMINOPHEN
     Indication: PAIN
     Dosage: 2600 MILLIGRAM
     Route: 048
     Dates: start: 20200604, end: 20200612
  120. WARFARIN [Concomitant]
     Active Substance: WARFARIN
     Indication: PERIPHERAL VASCULAR DISORDER
     Dosage: 3 MILLIGRAM
     Route: 048
     Dates: start: 2008
  121. PREDNISONE. [Concomitant]
     Active Substance: PREDNISONE
     Dosage: 10 MILLIGRAM
     Route: 048
     Dates: start: 20181109, end: 20181211
  122. PREDNISONE. [Concomitant]
     Active Substance: PREDNISONE
     Dosage: 7.5 MILLIGRAM
     Route: 048
     Dates: start: 20200129, end: 20200212
  123. PREDNISONE. [Concomitant]
     Active Substance: PREDNISONE
     Dosage: 10 MILLIGRAM
     Route: 048
     Dates: start: 20201221
  124. INSULIN LISPRO [Concomitant]
     Active Substance: INSULIN LISPRO
     Dosage: 2 UNITS
     Route: 058
     Dates: start: 20200609, end: 20200609
  125. INSULIN LISPRO [Concomitant]
     Active Substance: INSULIN LISPRO
     Dosage: 7 UNITS
     Route: 058
     Dates: start: 20200623, end: 20200623
  126. LORATADINE. [Concomitant]
     Active Substance: LORATADINE
     Indication: ANTIALLERGIC THERAPY
     Route: 048
     Dates: start: 20200610, end: 20200610
  127. LORATADINE. [Concomitant]
     Active Substance: LORATADINE
     Indication: ISCHAEMIA
  128. GABAPENTIN. [Concomitant]
     Active Substance: GABAPENTIN
     Indication: NEURALGIA
     Dosage: 100 MILLIGRAM
     Route: 048
     Dates: start: 20200621, end: 20200622
  129. HEPARIN [Concomitant]
     Active Substance: HEPARIN SODIUM
     Dosage: 8000 UNITS
     Route: 041
     Dates: start: 20200611, end: 20200611
  130. HYDROCORTISONE. [Concomitant]
     Active Substance: HYDROCORTISONE
     Indication: PAIN
     Dosage: 50 MILLIGRAM
     Route: 041
     Dates: start: 20200611, end: 20200616
  131. DEXTROSE. [Concomitant]
     Active Substance: DEXTROSE
     Route: 041
     Dates: start: 20200629, end: 20200701
  132. INSULIN REGULAR HUMAN [Concomitant]
     Indication: TYPE 2 DIABETES MELLITUS
     Dosage: 6 UNITS
     Route: 058
     Dates: start: 20200611, end: 20200616
  133. MORPHINE [Concomitant]
     Active Substance: MORPHINE
     Route: 041
     Dates: start: 20200629, end: 20200629
  134. PANTOPRAZOLE [Concomitant]
     Active Substance: PANTOPRAZOLE
     Indication: INFLAMMATORY BOWEL DISEASE
     Dosage: 80 MILLIGRAM
     Route: 048
     Dates: start: 20200616
  135. POTASSIUM CHLORIDE. [Concomitant]
     Active Substance: POTASSIUM CHLORIDE
     Indication: HYPOKALAEMIA
     Dosage: 40 MILLIEQUIVALENTS
     Route: 048
     Dates: start: 20200610, end: 20200610
  136. NYSTATIN. [Concomitant]
     Active Substance: NYSTATIN
     Indication: FUNGAL INFECTION
     Dosage: 5 MILLILITER
     Route: 048
     Dates: start: 20200702, end: 20200707
  137. SINCALIDE. [Concomitant]
     Active Substance: SINCALIDE
     Indication: RADIOTHERAPY
     Dosage: .83 MICROGRAM
     Route: 041
     Dates: start: 20200630, end: 20200630
  138. OZANIMOD. [Suspect]
     Active Substance: OZANIMOD
     Indication: COLITIS ULCERATIVE
     Route: 048
     Dates: start: 20180925, end: 20200428
  139. CHOLECYSTOKININ [Concomitant]
     Active Substance: CHOLECYSTOKININ
     Indication: PRODUCT USED FOR UNKNOWN INDICATION
     Route: 041
  140. LOSARTAN. [Concomitant]
     Active Substance: LOSARTAN
     Dosage: 25 MILLIGRAM
     Route: 048
     Dates: start: 20200630, end: 20200704
  141. INVOKANA [Concomitant]
     Active Substance: CANAGLIFLOZIN
     Indication: TYPE 2 DIABETES MELLITUS
     Dosage: 300 MILLIGRAM
     Route: 048
     Dates: start: 2015
  142. ACETAMINOPHEN. [Concomitant]
     Active Substance: ACETAMINOPHEN
     Route: 048
     Dates: start: 20200624, end: 20200707
  143. ACETAMINOPHEN. [Concomitant]
     Active Substance: ACETAMINOPHEN
     Route: 048
     Dates: start: 20200626, end: 20200629
  144. WARFARIN [Concomitant]
     Active Substance: WARFARIN
     Indication: THROMBOSIS PROPHYLAXIS
     Dosage: 2 MILLIGRAM
     Route: 048
     Dates: start: 20200627, end: 20200627
  145. WARFARIN [Concomitant]
     Active Substance: WARFARIN
     Dosage: 1 MILLIGRAM
     Route: 048
     Dates: start: 20200702, end: 20200702
  146. WARFARIN [Concomitant]
     Active Substance: WARFARIN
     Dosage: 3 MILLIGRAM
     Route: 048
     Dates: start: 20201219
  147. OXYCODONE [Concomitant]
     Active Substance: OXYCODONE
     Route: 048
     Dates: start: 20200629, end: 20200629
  148. PREDNISONE. [Concomitant]
     Active Substance: PREDNISONE
     Dosage: 2.5 MILLIGRAM
     Route: 048
     Dates: start: 20200305, end: 20200420
  149. COLCHICINE. [Concomitant]
     Active Substance: COLCHICINE
     Indication: CELLULITIS
     Dosage: 1.2 MILLIGRAM
     Route: 048
     Dates: start: 20200413
  150. INSULIN LISPRO [Concomitant]
     Active Substance: INSULIN LISPRO
     Dosage: 3 UNITS
     Route: 058
     Dates: start: 20200607, end: 20200610
  151. INSULIN LISPRO [Concomitant]
     Active Substance: INSULIN LISPRO
     Dosage: 6 UNITS
     Route: 058
     Dates: start: 20200607, end: 20200705
  152. INSULIN LISPRO [Concomitant]
     Active Substance: INSULIN LISPRO
     Dosage: 16 UNITS
     Route: 058
     Dates: start: 20201206, end: 20201217
  153. LABETALOL [Concomitant]
     Active Substance: LABETALOL\LABETALOL HYDROCHLORIDE
     Route: 041
     Dates: start: 20200603, end: 20200610
  154. LIDOCAINE PATCH [Concomitant]
     Active Substance: LIDOCAINE
     Indication: SIGMOIDOSCOPY
     Dosage: 60 MILLIGRAM
     Route: 041
     Dates: start: 20190813, end: 20190813
  155. LIDOCAINE PATCH [Concomitant]
     Active Substance: LIDOCAINE
     Indication: BACK PAIN
     Route: 023
     Dates: start: 20200603, end: 20200624
  156. PROPOFOL. [Concomitant]
     Active Substance: PROPOFOL
     Indication: SIGMOIDOSCOPY
     Dosage: 6.16 MILLIGRAM
     Route: 041
     Dates: start: 20190219, end: 20190219
  157. FARXIGA [Concomitant]
     Active Substance: DAPAGLIFLOZIN PROPANEDIOL
     Indication: DIABETES MELLITUS
     Dosage: 10 MILLIGRAM
     Route: 048
     Dates: start: 20200114
  158. NACL [Concomitant]
     Active Substance: SODIUM CHLORIDE
     Indication: ELECTROLYTE SUBSTITUTION THERAPY
     Dosage: 1000 MILLILITRE
     Route: 041
     Dates: start: 20200607, end: 20200607
  159. DIATRIZOATE MEGLUMINE [Concomitant]
     Active Substance: DIATRIZOATE MEGLUMINE
     Indication: PRODUCT USED FOR UNKNOWN INDICATION
     Dosage: 30 MILLILITER
     Route: 041
     Dates: start: 20200618, end: 20200618
  160. HEPARIN [Concomitant]
     Active Substance: HEPARIN SODIUM
     Indication: THROMBOSIS PROPHYLAXIS
     Route: 041
     Dates: start: 20200602, end: 20200603
  161. HYDROCORTISONE. [Concomitant]
     Active Substance: HYDROCORTISONE
     Indication: PRURITUS
     Dosage: 2.5 PERCENT
     Route: 061
     Dates: start: 20200623, end: 20200707
  162. HYDROCORTISONE. [Concomitant]
     Active Substance: HYDROCORTISONE
     Dosage: 50 MILLIGRAM
     Route: 061
     Dates: start: 20201206, end: 20201217
  163. INSULINE GLARGINE [Concomitant]
     Active Substance: INSULIN GLARGINE
     Indication: TYPE 2 DIABETES MELLITUS
     Dosage: 5 UNITS
     Route: 065
     Dates: start: 20200609, end: 20200609
  164. MORPHINE [Concomitant]
     Active Substance: MORPHINE
     Indication: PAIN
     Dosage: 1 MILLIGRAM
     Route: 041
     Dates: start: 20200618, end: 20200618
  165. POTASSIUM PHOSPHATE AND SODIUM PHOSPHATE [Concomitant]
     Indication: HYPOKALAEMIA
     Dosage: 2 PACKETS
     Route: 048
     Dates: start: 20200614, end: 20200614
  166. SENNA DOCUSATE [Concomitant]
     Indication: CONSTIPATION
     Route: 048
     Dates: start: 20200613, end: 20200618
  167. SENNA DOCUSATE [Concomitant]
     Dosage: 8.6 MILLIGRAM
     Route: 048
     Dates: start: 20200629, end: 20200706
  168. LACTATED RINGERS SOLUTION [Concomitant]
     Active Substance: CALCIUM CHLORIDE\POTASSIUM CHLORIDE\SODIUM CHLORIDE\SODIUM LACTATE
     Indication: FLUID REPLACEMENT
     Dosage: 250 MILLILITER
     Route: 041
     Dates: start: 20200629, end: 20200629
  169. ADENOSINE. [Concomitant]
     Active Substance: ADENOSINE
     Indication: CHEST PAIN
     Dosage: 46.3 MILLIGRAM
     Route: 041
     Dates: start: 20201210, end: 20201210
  170. AMLODIPINE [Concomitant]
     Active Substance: AMLODIPINE BESYLATE
     Indication: HYPERTENSION
     Dosage: 5 MILLIGRAM
     Route: 048
     Dates: start: 20201211, end: 20201212
  171. CEFTRIAXONE. [Concomitant]
     Active Substance: CEFTRIAXONE
     Indication: CHOLECYSTITIS ACUTE

REACTIONS (3)
  - Peripheral ischaemia [Recovered/Resolved]
  - Sepsis [Recovered/Resolved]
  - Cholecystitis acute [Recovered/Resolved]

NARRATIVE: CASE EVENT DATE: 20200603
